FAERS Safety Report 4502812-2 (Version None)
Quarter: 2004Q4

REPORT INFORMATION
  Report Type: 
  Country: None (occurrence: None)
  Receive Date: 20041116
  Receipt Date: 20041116
  Transmission Date: 20050328
  Serious: Yes (Other)
  Sender: FDA-Public Use
  Company Number: None

PATIENT
  Sex: Female

DRUGS (2)
  1. EPTIFIBATIDE 75MG/100ML [Suspect]
     Indication: ACUTE CORONARY SYNDROME
     Dates: start: 20041105, end: 20041106
  2. HEPARIN [Suspect]
     Indication: ACUTE CORONARY SYNDROME
     Dates: start: 20041105, end: 20041106

REACTIONS (1)
  - THROMBOCYTOPENIA [None]
